FAERS Safety Report 8145050-7 (Version None)
Quarter: 2012Q1

REPORT INFORMATION
  Report Type: 
  Country: None (occurrence: None)
  Receive Date: 20120217
  Receipt Date: 20120208
  Transmission Date: 20120608
  Serious: Yes (Other)
  Sender: FDA-Public Use
  Company Number: US-CELGENEUS-163-20785-12012140

PATIENT
  Sex: Female

DRUGS (12)
  1. THALOMID [Suspect]
     Dosage: 200 MILLIGRAM
     Route: 048
     Dates: start: 20060501
  2. THALOMID [Suspect]
     Dosage: 200 MILLIGRAM
     Route: 048
     Dates: start: 20060101
  3. THALOMID [Suspect]
     Dosage: 200 MILLIGRAM
     Route: 048
     Dates: start: 20111201
  4. AMLODIPINE [Concomitant]
     Indication: HYPERTENSION
     Route: 065
     Dates: start: 20080101
  5. THALOMID [Suspect]
     Indication: SARCOIDOSIS
     Dosage: 50 MILLIGRAM
     Route: 048
     Dates: start: 20050601
  6. THALOMID [Suspect]
     Dosage: 200 MILLIGRAM
     Route: 048
     Dates: start: 20050701
  7. METFORMIN HCL [Concomitant]
     Indication: DIABETES MELLITUS
     Route: 065
     Dates: start: 20070101
  8. THALOMID [Suspect]
     Dosage: 200MG-800MG
     Route: 048
     Dates: start: 20110201
  9. LEVOTHYROXINE SODIUM [Concomitant]
     Route: 065
  10. SPIRONOLACTONE [Concomitant]
     Indication: HYPERTENSION
     Route: 065
     Dates: start: 20080101
  11. THALOMID [Suspect]
     Dosage: 200 MILLIGRAM
     Route: 048
     Dates: start: 20070301
  12. ADVAIR DISKUS 100/50 [Concomitant]
     Indication: ASTHMA
     Route: 065
     Dates: start: 20050101

REACTIONS (5)
  - HYPERTENSION [None]
  - DIABETES MELLITUS [None]
  - NEUROPATHY PERIPHERAL [None]
  - BLINDNESS [None]
  - CEREBROVASCULAR ACCIDENT [None]
